FAERS Safety Report 11881967 (Version 1)
Quarter: 2015Q4

REPORT INFORMATION
  Report Type: Spontaneous
  Country: US (occurrence: None)
  Receive Date: 20151230
  Receipt Date: 20151230
  Transmission Date: 20160305
  Serious: Yes (Other)
  Sender: FDA-Public Use
  Company Number: None

PATIENT
  Age: 38 Year
  Sex: Female

DRUGS (1)
  1. LYRICA [Suspect]
     Active Substance: PREGABALIN

REACTIONS (11)
  - Tremor [None]
  - Autoimmune thyroiditis [None]
  - Dizziness [None]
  - Weight increased [None]
  - Dental caries [None]
  - Vitamin D deficiency [None]
  - Depression [None]
  - Peripheral swelling [None]
  - Restless legs syndrome [None]
  - Sleep disorder [None]
  - Vertigo [None]

NARRATIVE: CASE EVENT DATE: 20061011
